FAERS Safety Report 23874765 (Version 1)
Quarter: 2024Q2

REPORT INFORMATION
  Report Type: Spontaneous
  Country: US (occurrence: US)
  Receive Date: 20240520
  Receipt Date: 20240520
  Transmission Date: 20240716
  Serious: No
  Sender: FDA-Public Use
  Company Number: US-002147023-NVSC2024US100167

PATIENT
  Age: 1 Year
  Sex: Female

DRUGS (1)
  1. KYMRIAH [Suspect]
     Active Substance: TISAGENLECLEUCEL
     Indication: Acute lymphocytic leukaemia
     Dosage: 3.3E6 CAR-POSITIVE VIABLE T CELLS / KG, ONCE/SINGLE
     Route: 042
     Dates: start: 20240401, end: 20240401

REACTIONS (1)
  - Oncotype test [Unknown]
